FAERS Safety Report 7465060-2 (Version None)
Quarter: 2011Q2

REPORT INFORMATION
  Report Type: 
  Country: None (occurrence: None)
  Receive Date: 20110505
  Receipt Date: 20110505
  Transmission Date: 20111010
  Serious: No
  Sender: FDA-Public Use
  Company Number: None

PATIENT
  Sex: Female
  Weight: 72.1 kg

DRUGS (1)
  1. PACLITAXEL [Suspect]
     Indication: OVARIAN CANCER
     Dosage: 108MG WEEKLY INTRAVANEOUS 041
     Route: 042
     Dates: start: 20110214, end: 20110314

REACTIONS (3)
  - HYPERTENSION [None]
  - ABDOMINAL PAIN [None]
  - INFUSION RELATED REACTION [None]
